FAERS Safety Report 25252521 (Version 1)
Quarter: 2025Q2

REPORT INFORMATION
  Report Type: Spontaneous
  Country: US (occurrence: US)
  Receive Date: 20250429
  Receipt Date: 20250429
  Transmission Date: 20250716
  Serious: No
  Sender: MERCK SHARP & DOHME LLC
  Company Number: US-009507513-2279650

PATIENT
  Age: 82 Year
  Sex: Female

DRUGS (5)
  1. IMIPENEM [Suspect]
     Active Substance: IMIPENEM
     Indication: Necrotising scleritis
     Route: 061
  2. TOBRAMYCIN [Concomitant]
     Active Substance: TOBRAMYCIN
     Indication: Necrotising scleritis
  3. PREDNISOLONE [Concomitant]
     Active Substance: PREDNISOLONE
     Indication: Necrotising scleritis
  4. MOXIFLOXACIN [Concomitant]
     Active Substance: MOXIFLOXACIN
     Indication: Necrotising scleritis
  5. DOXYCYCLINE [Concomitant]
     Active Substance: DOXYCYCLINE
     Indication: Necrotising scleritis

REACTIONS (1)
  - Product use in unapproved indication [Unknown]
